FAERS Safety Report 9387457 (Version 1)
Quarter: 2013Q3

REPORT INFORMATION
  Report Type: Spontaneous
  Country: US (occurrence: None)
  Receive Date: 20130702
  Receipt Date: 20130702
  Transmission Date: 20140515
  Serious: Yes (Other)
  Sender: FDA-Public Use
  Company Number: A1027392A

PATIENT
  Age: 78 Year
  Sex: Female

DRUGS (4)
  1. CALCIUM CARBONATE [Suspect]
     Indication: GASTROOESOPHAGEAL REFLUX DISEASE
     Dates: start: 20130608, end: 20130614
  2. BLOOD PRESSURE MEDICATION [Concomitant]
  3. ANTIHYPERCHOLESTEROLAEMIC [Concomitant]
  4. INSULIN [Concomitant]

REACTIONS (3)
  - Constipation [None]
  - Defaecation urgency [None]
  - Drug administration error [None]
